FAERS Safety Report 12198550 (Version 1)
Quarter: 2016Q1

REPORT INFORMATION
  Report Type: Spontaneous
  Country: US (occurrence: US)
  Receive Date: 20160322
  Receipt Date: 20160322
  Transmission Date: 20160526
  Serious: No
  Sender: FDA-Public Use
  Company Number: US-JNJFOC-20160202106

PATIENT
  Sex: Male
  Weight: 80.74 kg

DRUGS (3)
  1. BENZTROPINE [Concomitant]
     Active Substance: BENZTROPINE
     Indication: PARKINSON^S DISEASE
     Route: 048
  2. RISPERIDONE. [Suspect]
     Active Substance: RISPERIDONE
     Indication: SLEEP DISORDER
     Route: 048
  3. RISPERDAL CONSTA [Suspect]
     Active Substance: RISPERIDONE
     Indication: PSYCHOTIC DISORDER
     Route: 030
     Dates: start: 201511

REACTIONS (9)
  - Product use issue [Unknown]
  - Vomiting [Not Recovered/Not Resolved]
  - Tobacco user [Not Recovered/Not Resolved]
  - Diarrhoea [Not Recovered/Not Resolved]
  - Prescribed overdose [Unknown]
  - Off label use [Unknown]
  - Adverse event [Unknown]
  - Product packaging issue [Unknown]
  - Nausea [Not Recovered/Not Resolved]

NARRATIVE: CASE EVENT DATE: 2015
